FAERS Safety Report 18554502 (Version 1)
Quarter: 2020Q4

REPORT INFORMATION
  Report Type: Report from Study
  Country: IT (occurrence: IT)
  Receive Date: 20201127
  Receipt Date: 20201127
  Transmission Date: 20210114
  Serious: Yes (Hospitalization)
  Sender: FDA-Public Use
  Company Number: IT-ROCHE-2717042

PATIENT
  Age: 60 Year
  Sex: Male
  Weight: 71 kg

DRUGS (3)
  1. ATEZOLIZUMAB. [Suspect]
     Active Substance: ATEZOLIZUMAB
     Indication: COLORECTAL CANCER METASTATIC
     Dosage: ON 23/OCT/2020, THE PATIENT RECEIVED MOST RECENT DOSE 840 MG PRIOR TO AE.?SHE RECEIVED 29 CYCLE.
     Route: 042
     Dates: start: 20190719
  2. 5-FLUOROURACIL [Suspect]
     Active Substance: FLUOROURACIL
     Indication: COLORECTAL CANCER METASTATIC
     Dosage: ON 23/OCT/2020, THE PATIENT RECEIVED MOST RECENT DOSE 4368 MG PRIOR TO AE.?HE RECEIVED 29 CYCLE.
     Route: 042
     Dates: start: 20190719
  3. BEVACIZUMAB. [Suspect]
     Active Substance: BEVACIZUMAB
     Indication: COLORECTAL CANCER METASTATIC
     Dosage: ON 23/OCT/2020, THE PATIENT RECEIVED MOST RECENT DOSE 360 MG PRIOR TO AE.?SHE RECEIVED 28 CYCLE.
     Route: 042
     Dates: start: 20190719, end: 20201113

REACTIONS (1)
  - Abscess [Not Recovered/Not Resolved]

NARRATIVE: CASE EVENT DATE: 20201113
